FAERS Safety Report 4835368-5 (Version None)
Quarter: 2005Q4

REPORT INFORMATION
  Report Type: 
  Country: None (occurrence: None)
  Receive Date: 20051114
  Receipt Date: 20051104
  Transmission Date: 20060501
  Serious: Yes (Hospitalization)
  Sender: FDA-Public Use
  Company Number: USA0511112755

PATIENT
  Age: 64 Year
  Sex: Female

DRUGS (5)
  1. CYMBALTA [Suspect]
     Indication: FIBROMYALGIA
     Dosage: 60 MG DAY
     Dates: start: 20050811, end: 20050829
  2. CARDIAC MEDICATIONS [Concomitant]
  3. EFFEXOR [Concomitant]
  4. LIPITOR [Concomitant]
  5. NEURONTIN [Concomitant]

REACTIONS (2)
  - AKATHISIA [None]
  - DELIRIUM [None]
